FAERS Safety Report 18360863 (Version 1)
Quarter: 2020Q4

REPORT INFORMATION
  Report Type: Spontaneous
  Country: SE (occurrence: SE)
  Receive Date: 20201008
  Receipt Date: 20201008
  Transmission Date: 20210114
  Serious: Yes (Disabling)
  Sender: FDA-Public Use
  Company Number: SE-PFIZER INC-2020386545

PATIENT
  Age: 25 Year
  Sex: Female

DRUGS (2)
  1. DALACIN [Suspect]
     Active Substance: CLINDAMYCIN
     Indication: ECZEMA INFECTED
     Dosage: 600 MG, DAILY
     Route: 048
     Dates: start: 20190910, end: 20190920
  2. FLUCLOXACILLIN [Suspect]
     Active Substance: FLUCLOXACILLIN
     Indication: ECZEMA INFECTED
     Dosage: 3 G, DAILY
     Route: 048
     Dates: start: 20190907, end: 20190909

REACTIONS (2)
  - Off label use [Unknown]
  - Polyneuropathy [Not Recovered/Not Resolved]

NARRATIVE: CASE EVENT DATE: 20190910
